FAERS Safety Report 5917642-4 (Version None)
Quarter: 2008Q4

REPORT INFORMATION
  Report Type: 
  Country: None (occurrence: None)
  Receive Date: 20081009
  Receipt Date: 20081001
  Transmission Date: 20090506
  Serious: Yes (Other)
  Sender: FDA-Public Use
  Company Number: 2008SP020105

PATIENT
  Age: 55 Year
  Sex: Female

DRUGS (2)
  1. PEG-INTRON [Suspect]
     Indication: HEPATIC CIRRHOSIS
     Dosage: ; SC
     Route: 058
     Dates: start: 20050501
  2. REBETOL [Suspect]
     Indication: HEPATIC CIRRHOSIS
     Dosage: ; PO
     Route: 048
     Dates: start: 20050501

REACTIONS (2)
  - AUTOIMMUNE HEPATITIS [None]
  - LIVER TRANSPLANT REJECTION [None]
